FAERS Safety Report 4604032-X (Version None)
Quarter: 2005Q1

REPORT INFORMATION
  Report Type: 
  Country: None (occurrence: None)
  Receive Date: 20050308
  Receipt Date: 20050222
  Transmission Date: 20050727
  Serious: Yes (Other)
  Sender: FDA-Public Use
  Company Number: USA-2003-0009608

PATIENT
  Age: 55 Year
  Sex: Male

DRUGS (3)
  1. OXYCONTIN [Suspect]
     Indication: PAIN
     Dosage: MG
  2. ELAVIL [Concomitant]
  3. ALPRAZOLAM [Concomitant]

REACTIONS (19)
  - ANXIETY [None]
  - ARTHRALGIA [None]
  - CHILLS [None]
  - DEPRESSION [None]
  - DISCOMFORT [None]
  - DISTURBANCE IN ATTENTION [None]
  - DRUG DEPENDENCE [None]
  - DRUG WITHDRAWAL SYNDROME [None]
  - EJACULATION DELAYED [None]
  - FEELING ABNORMAL [None]
  - HEADACHE [None]
  - HYPERHIDROSIS [None]
  - INADEQUATE ANALGESIA [None]
  - PAIN [None]
  - PAIN IN EXTREMITY [None]
  - PERIARTHRITIS [None]
  - PYREXIA [None]
  - TENDERNESS [None]
  - TESTICULAR DISORDER [None]
